FAERS Safety Report 8473696-5 (Version None)
Quarter: 2012Q2

REPORT INFORMATION
  Report Type: 
  Country: None (occurrence: None)
  Receive Date: 20120628
  Receipt Date: 20110913
  Transmission Date: 20120825
  Serious: Yes (Death)
  Sender: FDA-Public Use
  Company Number: US-MYLANLABS-2011S1019020

PATIENT
  Age: 53 Year
  Sex: Male

DRUGS (5)
  1. CLOZAPINE [Suspect]
     Indication: SCHIZOPHRENIA
     Route: 048
  2. TRAZODONE HCL [Concomitant]
  3. CLOZAPINE [Suspect]
     Route: 048
  4. KLONOPIN [Concomitant]
  5. PAXIL [Concomitant]

REACTIONS (1)
  - LUNG NEOPLASM MALIGNANT [None]
